FAERS Safety Report 26183657 (Version 1)
Quarter: 2025Q4

REPORT INFORMATION
  Report Type: Report from Study
  Country: CA (occurrence: CA)
  Receive Date: 20251221
  Receipt Date: 20251221
  Transmission Date: 20260118
  Serious: Yes (Other)
  Sender: ABBVIE
  Company Number: CA-ABBVIE-6584908

PATIENT
  Age: 60 Year
  Sex: Male

DRUGS (2)
  1. LUPRON [Suspect]
     Active Substance: LEUPROLIDE ACETATE
     Indication: Prostate cancer
     Dosage: FORM STRENGTH : 22.5 MG
     Route: 065
     Dates: start: 20250627
  2. LUPRON [Suspect]
     Active Substance: LEUPROLIDE ACETATE
     Dosage: FORM STRENGTH : 22.5 MG
     Route: 030
     Dates: start: 2025

REACTIONS (16)
  - Loss of consciousness [Unknown]
  - Pain in extremity [Unknown]
  - Blood pressure increased [Unknown]
  - Dizziness [Unknown]
  - Asthenia [Unknown]
  - Arthralgia [Unknown]
  - Diabetes mellitus [Unknown]
  - Visual impairment [Unknown]
  - Unevaluable event [Unknown]
  - Hot flush [Unknown]
  - Eye pain [Unknown]
  - Feeling cold [Unknown]
  - Injection site swelling [Unknown]
  - Anxiety [Unknown]
  - Constipation [Unknown]
  - Neuropathy peripheral [Unknown]

NARRATIVE: CASE EVENT DATE: 20250101
